FAERS Safety Report 13347190 (Version 4)
Quarter: 2018Q1

REPORT INFORMATION
  Report Type: Spontaneous
  Country: BR (occurrence: BR)
  Receive Date: 20170317
  Receipt Date: 20180102
  Transmission Date: 20180508
  Serious: Yes (Other)
  Sender: FDA-Public Use
  Company Number: BR-LUNDBECK-DKLU2028009

PATIENT
  Age: 21 Year
  Sex: Male

DRUGS (6)
  1. FRISIUM [Suspect]
     Active Substance: CLOBAZAM
     Route: 048
     Dates: start: 201701
  2. FRISIUM [Suspect]
     Active Substance: CLOBAZAM
     Route: 048
     Dates: start: 201701
  3. GARDENAL [Concomitant]
     Active Substance: PHENOBARBITAL
     Indication: PRODUCT USED FOR UNKNOWN INDICATION
     Route: 065
     Dates: start: 1995
  4. OXCARBAZEPINE. [Concomitant]
     Active Substance: OXCARBAZEPINE
     Indication: PRODUCT USED FOR UNKNOWN INDICATION
     Route: 065
     Dates: start: 2005
  5. FRISIUM [Suspect]
     Active Substance: CLOBAZAM
     Indication: CONVULSION PROPHYLAXIS
     Route: 048
     Dates: start: 2008
  6. TORVAL [Concomitant]
     Active Substance: VALPROIC ACID
     Indication: PRODUCT USED FOR UNKNOWN INDICATION
     Route: 065
     Dates: start: 2005

REACTIONS (3)
  - Seizure [Recovering/Resolving]
  - C-reactive protein increased [Unknown]
  - Product quality issue [Unknown]
